FAERS Safety Report 6460500-X (Version None)
Quarter: 2009Q4

REPORT INFORMATION
  Report Type: 
  Country: None (occurrence: None)
  Receive Date: 20091130
  Receipt Date: 20091118
  Transmission Date: 20100525
  Serious: Yes (Other)
  Sender: FDA-Public Use
  Company Number: SE-JNJFOC-20091105310

PATIENT
  Age: 54 Year
  Sex: Male

DRUGS (15)
  1. TAVANIC [Suspect]
     Indication: UROSEPSIS
     Route: 048
     Dates: start: 20071102, end: 20071116
  2. MEROPENEM [Suspect]
     Indication: UROSEPSIS
     Route: 042
  3. ZINACEF [Suspect]
     Indication: UROSEPSIS
     Route: 065
  4. CIPROFLOXACIN [Suspect]
     Indication: UROSEPSIS
     Route: 065
  5. SANDIMMUNE [Concomitant]
     Route: 065
  6. GABAPENTIN [Concomitant]
     Route: 065
  7. FUROSEMID [Concomitant]
     Route: 065
  8. ALVEDON [Concomitant]
     Route: 065
  9. NYSTATIN [Concomitant]
     Route: 065
  10. TRANDATE [Concomitant]
     Route: 065
  11. FLAGYL [Concomitant]
     Route: 065
  12. KALIUM-R [Concomitant]
     Route: 065
  13. PREDNISOLONE [Concomitant]
     Route: 065
  14. ALLOPURINOL [Concomitant]
     Route: 065
  15. CELLCEPT [Concomitant]
     Route: 065

REACTIONS (2)
  - CLOSTRIDIUM TEST POSITIVE [None]
  - TENDON RUPTURE [None]
